FAERS Safety Report 12076505 (Version 1)
Quarter: 2016Q1

REPORT INFORMATION
  Report Type: Report from Study
  Country: BE (occurrence: BE)
  Receive Date: 20160215
  Receipt Date: 20160215
  Transmission Date: 20160526
  Serious: Yes (Hospitalization)
  Sender: FDA-Public Use
  Company Number: PHHY2016BE017079

PATIENT
  Age: 5 Month
  Sex: Male
  Weight: 6.9 kg

DRUGS (5)
  1. TEGRETOL [Suspect]
     Active Substance: CARBAMAZEPINE
     Indication: SEIZURE
     Dosage: 3.7 ML, BID
     Route: 048
     Dates: start: 20151211
  2. KEPPRA [Concomitant]
     Active Substance: LEVETIRACETAM
     Indication: PRODUCT USED FOR UNKNOWN INDICATION
     Dosage: UNK
     Route: 065
     Dates: start: 20151211
  3. PREGABALIN. [Suspect]
     Active Substance: PREGABALIN
     Dosage: 0.3 ML, TID
     Route: 048
     Dates: start: 20151224, end: 20151231
  4. TOPAMAX [Concomitant]
     Active Substance: TOPIRAMATE
     Indication: PRODUCT USED FOR UNKNOWN INDICATION
     Dosage: UNK
     Route: 065
     Dates: start: 20151211
  5. PREGABALIN. [Suspect]
     Active Substance: PREGABALIN
     Indication: SEIZURE
     Dosage: 0.6 ML, TID
     Route: 048
     Dates: start: 20151211, end: 20151223

REACTIONS (2)
  - Epilepsy [Recovered/Resolved]
  - Cyanosis [Recovered/Resolved]

NARRATIVE: CASE EVENT DATE: 20151214
